FAERS Safety Report 6508649-7 (Version None)
Quarter: 2009Q4

REPORT INFORMATION
  Report Type: 
  Country: None (occurrence: None)
  Receive Date: 20091221
  Receipt Date: 20081230
  Transmission Date: 20100525
  Serious: No
  Sender: FDA-Public Use
  Company Number: US-ASTRAZENECA-2008UW28969

PATIENT
  Age: 67 Year
  Sex: Female
  Weight: 77.1 kg

DRUGS (3)
  1. CRESTOR [Suspect]
     Indication: BLOOD TRIGLYCERIDES INCREASED
     Dosage: UNKNOWN
     Route: 048
     Dates: start: 20081216
  2. COZAAR [Concomitant]
  3. METFORMIN HCL [Concomitant]

REACTIONS (1)
  - PARAESTHESIA [None]
